FAERS Safety Report 6653217-X (Version None)
Quarter: 2010Q1

REPORT INFORMATION
  Report Type: 
  Country: None (occurrence: None)
  Receive Date: 20100326
  Receipt Date: 20100324
  Transmission Date: 20100710
  Serious: Yes (Other)
  Sender: FDA-Public Use
  Company Number: US-BRISTOL-MYERS SQUIBB COMPANY-15033467

PATIENT
  Sex: Female

DRUGS (1)
  1. COUMADIN [Suspect]
     Dates: start: 20060101

REACTIONS (1)
  - THROMBOSIS [None]
